FAERS Safety Report 11283910 (Version 2)
Quarter: 2015Q3

REPORT INFORMATION
  Report Type: Spontaneous
  Country: CH (occurrence: CH)
  Receive Date: 20150720
  Receipt Date: 20150721
  Transmission Date: 20151125
  Serious: Yes (Hospitalization, Other)
  Sender: FDA-Public Use
  Company Number: CH-PFIZER INC-2015235339

PATIENT
  Age: 81 Year
  Sex: Female
  Weight: 79.2 kg

DRUGS (6)
  1. LASILACTON [Concomitant]
     Active Substance: FUROSEMIDE\SPIRONOLACTONE
     Dosage: 50 MG, 1X/DAY
     Route: 048
  2. TRAMAL [Suspect]
     Active Substance: TRAMADOL
     Dosage: 20 GTT, 2X/DAY
     Route: 048
  3. TRAMAL [Suspect]
     Active Substance: TRAMADOL
     Dosage: 45 GTT, UNK
     Route: 048
     Dates: end: 20150513
  4. PANTOZOL [Concomitant]
     Active Substance: PANTOPRAZOLE SODIUM
     Dosage: 40 MG, 1X/DAY
     Route: 048
  5. LYRICA [Suspect]
     Active Substance: PREGABALIN
     Dosage: 25 MG, 1X/DAY
     Route: 048
     Dates: end: 20150513
  6. ASPIRIN CARDIO [Concomitant]
     Active Substance: ASPIRIN
     Dosage: 100 MG, 1X/DAY
     Route: 048

REACTIONS (6)
  - Urinary tract infection [Recovered/Resolved]
  - Blood pressure systolic increased [Unknown]
  - Altered state of consciousness [Recovered/Resolved]
  - Confusional state [Recovered/Resolved]
  - Abdominal pain upper [Unknown]
  - Disorientation [Recovered/Resolved]

NARRATIVE: CASE EVENT DATE: 201505
